FAERS Safety Report 19880334 (Version 1)
Quarter: 2021Q3

REPORT INFORMATION
  Report Type: Spontaneous
  Country: CA (occurrence: CA)
  Receive Date: 20210925
  Receipt Date: 20210925
  Transmission Date: 20211014
  Serious: Yes (Hospitalization, Other)
  Sender: FDA-Public Use
  Company Number: CA-TAKEDA-2021TUS057817

PATIENT
  Age: 32 Year
  Sex: Female
  Weight: 52 kg

DRUGS (7)
  1. MINERALS NOS;VITAMIN B NOS [Concomitant]
     Indication: PREGNANCY
     Dosage: UNK
     Route: 065
  2. VITAMIN B COMPLEX [Concomitant]
     Active Substance: CYANOCOBALAMIN\DEXPANTHENOL\NIACINAMIDE\PYRIDOXINE HYDROCHLORIDE\RIBOFLAVIN 5^-PHOSPHATE SODIUM\THIAMINE HYDROCHLORIDE\VITAMIN B COMPLEX
     Indication: PREGNANCY
     Route: 065
  3. VITAMIN D [Suspect]
     Active Substance: VITAMIN D NOS
     Indication: MULTIPLE SCLEROSIS
     Dosage: 10000 INTERNATIONAL UNIT, QD
     Route: 065
  4. VITAMIN D [Suspect]
     Active Substance: VITAMIN D NOS
     Dosage: UNK
     Route: 065
  5. IRON [Concomitant]
     Active Substance: IRON
     Indication: PREGNANCY
     Dosage: UNK
     Route: 065
  6. MESALAZINE [Suspect]
     Active Substance: MESALAMINE
     Indication: COLITIS ULCERATIVE
     Dosage: 1 DOSAGE FORM, QD
     Route: 065
  7. MAGNESIUM [Concomitant]
     Active Substance: MAGNESIUM
     Indication: PREGNANCY
     Route: 065

REACTIONS (2)
  - Intestinal obstruction [Recovered/Resolved]
  - Pregnancy [Recovered/Resolved]
